FAERS Safety Report 18397623 (Version 1)
Quarter: 2020Q4

REPORT INFORMATION
  Report Type: Spontaneous
  Country: NL (occurrence: NL)
  Receive Date: 20201019
  Receipt Date: 20201019
  Transmission Date: 20210114
  Serious: Yes (Hospitalization)
  Sender: FDA-Public Use
  Company Number: NL-TEVA-2020-NL-1838735

PATIENT
  Age: 49 Year
  Sex: Female
  Weight: 71 kg

DRUGS (6)
  1. PLANTAGO OVATA GRANULAAT 3,25G / BRAND NAME NOT SPECIFIED [Concomitant]
     Dosage: BAG (GRANULATE),UNIT DOSE : 3.25 GRAM, THERAPY START DATE AND END DATE : ASKU
  2. PACLITAXEL INFUUS / BRAND NAME NOT SPECIFIED [Suspect]
     Active Substance: PACLITAXEL
     Indication: BREAST CANCER
     Dosage: 1 INFUSION PER WEEK, 150 MG = 275 ML, UNIT DOSE  : 150 MG
     Dates: start: 20200825, end: 20200902
  3. METOCLOPRAMIDE ZETPIL 10MG / BRAND NAME NOT SPECIFIED [Concomitant]
     Dosage: UNIT DOSE : 10 MG , THERAPY START DATE AND END DATE : ASKU
  4. ATORVASTATINE TABLET 40MG / BRAND NAME NOT SPECIFIED [Concomitant]
     Dosage: UNIT DOSE : 40 MG, THERAPY START DATE AND END DATE : ASKU
  5. PARACETAMOL TABLET  500MG / BPH PARACETAMOL TABLET 500MG [Concomitant]
     Dosage: UNIT DOSE : 500 MG , THERAPY START DATE AND END DATE : ASKU
  6. METOCLOPRAMIDE TABLET 10MG / BRAND NAME NOT SPECIFIED [Concomitant]
     Active Substance: METOCLOPRAMIDE
     Dosage: UNIT DOSE : 10 MG , THERAPY START DATE AND END DATE : ASKU

REACTIONS (1)
  - Pneumonitis [Recovering/Resolving]

NARRATIVE: CASE EVENT DATE: 20200907
